FAERS Safety Report 5108111-2 (Version None)
Quarter: 2006Q3

REPORT INFORMATION
  Report Type: 
  Country: None (occurrence: None)
  Receive Date: 20060919
  Receipt Date: 20060914
  Transmission Date: 20061208
  Serious: Yes (Death, Life-Threatening, Other)
  Sender: FDA-Public Use
  Company Number: US-GLAXOSMITHKLINE-A0620169A

PATIENT
  Age: 77 Year
  Sex: Male
  Weight: 77.3 kg

DRUGS (1)
  1. DIGOXIN [Suspect]
     Indication: CARDIAC FAILURE
     Dosage: .125MG PER DAY
     Route: 048

REACTIONS (2)
  - BRONCHOPNEUMONIA [None]
  - THERAPEUTIC AGENT TOXICITY [None]
